FAERS Safety Report 5079208-0 (Version None)
Quarter: 2006Q3

REPORT INFORMATION
  Report Type: 
  Country: None (occurrence: None)
  Receive Date: 20060720
  Receipt Date: 20050606
  Transmission Date: 20061208
  Serious: Yes (Hospitalization, Other)
  Sender: FDA-Public Use
  Company Number: 2005085762

PATIENT
  Age: 70 Year
  Sex: Female

DRUGS (5)
  1. CELEBREX [Suspect]
     Indication: ARTHRALGIA
     Dosage: 200 MG (200 MG, 1 IN 1 D), ORAL
     Route: 048
     Dates: end: 20050101
  2. DILTIAZEM HCL [Concomitant]
  3. OSCAL (CALCIUM CARBONATE) [Concomitant]
  4. ACETYLSALICYLIC ACID [Concomitant]
  5. PRAVACHOL [Concomitant]

REACTIONS (10)
  - ANOREXIA [None]
  - ARTERIAL OCCLUSIVE DISEASE [None]
  - BODY HEIGHT DECREASED [None]
  - CHEST DISCOMFORT [None]
  - DIZZINESS [None]
  - HIATUS HERNIA [None]
  - MALAISE [None]
  - OSTEOPOROSIS [None]
  - STOMACH DISCOMFORT [None]
  - WEIGHT DECREASED [None]
